FAERS Safety Report 8649090 (Version 2)
Quarter: 2013Q3

REPORT INFORMATION
  Report Type: Spontaneous
  Country: US (occurrence: US)
  Receive Date: 20120704
  Receipt Date: 20130719
  Transmission Date: 20140515
  Serious: Yes (Other)
  Sender: FDA-Public Use
  Company Number: US-ROCHE-1057236

PATIENT
  Age: 38 Year
  Sex: Male
  Weight: 68.1 kg

DRUGS (1)
  1. ACCUTANE [Suspect]
     Indication: ACNE
     Route: 065
     Dates: start: 199806, end: 199808

REACTIONS (5)
  - Inflammatory bowel disease [Unknown]
  - Colitis [Unknown]
  - Major depression [Unknown]
  - Mental disorder [Unknown]
  - Irritable bowel syndrome [Unknown]
